FAERS Safety Report 23890722 (Version 2)
Quarter: 2024Q2

REPORT INFORMATION
  Report Type: Spontaneous
  Country: FR (occurrence: FR)
  Receive Date: 20240523
  Receipt Date: 20240603
  Transmission Date: 20240716
  Serious: Yes (Other)
  Sender: FDA-Public Use
  Company Number: None

PATIENT
  Age: 63 Year
  Sex: Female
  Weight: 60 kg

DRUGS (4)
  1. DOXYCYCLINE [Suspect]
     Active Substance: DOXYCYCLINE\DOXYCYCLINE HYCLATE
     Indication: Drug toxicity prophylaxis
     Dosage: 200 MILLIGRAM, QD
     Route: 048
     Dates: start: 20240410
  2. KRAZATI [Suspect]
     Active Substance: ADAGRASIB
     Indication: Colorectal cancer metastatic
     Dosage: 1200 MILLIGRAM, QD
     Route: 048
     Dates: start: 20231127, end: 20240326
  3. KRAZATI [Suspect]
     Active Substance: ADAGRASIB
     Dosage: 800 MILLIGRAM, QD
     Route: 048
     Dates: start: 20240327
  4. ERBITUX [Concomitant]
     Active Substance: CETUXIMAB
     Dosage: UNK
     Route: 065

REACTIONS (1)
  - Cholestasis [Not Recovered/Not Resolved]

NARRATIVE: CASE EVENT DATE: 20240422
